FAERS Safety Report 4934858-4 (Version None)
Quarter: 2006Q1

REPORT INFORMATION
  Report Type: 
  Country: None (occurrence: None)
  Receive Date: 20060302
  Receipt Date: 20060217
  Transmission Date: 20060701
  Serious: Yes (Death, Hospitalization)
  Sender: FDA-Public Use
  Company Number: 2006020688

PATIENT
  Age: 56 Year
  Sex: Male

DRUGS (5)
  1. SUTENT [Suspect]
     Indication: METASTATIC RENAL CELL CARCINOMA
     Dosage: 50 MG (50 MG,  1 IN 1 D), ORAL
     Route: 048
     Dates: start: 20051210, end: 20060208
  2. RAMIPRIL [Concomitant]
  3. LASIX [Concomitant]
  4. NORVASC [Concomitant]
  5. ALLOPURINOL [Concomitant]

REACTIONS (6)
  - ANAEMIA [None]
  - BLOOD CREATININE INCREASED [None]
  - DYSPNOEA [None]
  - HYPERTENSION [None]
  - PYREXIA [None]
  - THROMBOCYTOPENIA [None]
